FAERS Safety Report 6888696-6 (Version None)
Quarter: 2010Q3

REPORT INFORMATION
  Report Type: 
  Country: None (occurrence: None)
  Receive Date: 20100730
  Receipt Date: 20071030
  Transmission Date: 20110219
  Serious: No
  Sender: FDA-Public Use
  Company Number: US-PFIZER INC-2007016855

PATIENT
  Age: 30 Year
  Sex: Female
  Weight: 99.79 kg

DRUGS (1)
  1. LIPITOR [Suspect]
     Indication: HYPERCHOLESTEROLAEMIA
     Route: 048
     Dates: start: 20070601

REACTIONS (3)
  - MEDICATION ERROR [None]
  - PALPITATIONS [None]
  - PANIC DISORDER [None]
